FAERS Safety Report 4592805-1 (Version None)
Quarter: 2005Q1

REPORT INFORMATION
  Report Type: 
  Country: None (occurrence: None)
  Receive Date: 20050228
  Receipt Date: 20050216
  Transmission Date: 20050727
  Serious: Yes (Hospitalization)
  Sender: FDA-Public Use
  Company Number: US-BRISTOL-MYERS SQUIBB COMPANY-12864369

PATIENT
  Age: 61 Year
  Sex: Female

DRUGS (14)
  1. CISPLATIN [Suspect]
     Indication: SQUAMOUS CELL CARCINOMA
     Route: 042
     Dates: start: 20000901, end: 20000901
  2. CARBOPLATIN [Suspect]
     Indication: SQUAMOUS CELL CARCINOMA
     Route: 042
     Dates: start: 20000929, end: 20001117
  3. BLINDED: CETUXIMAB [Suspect]
     Indication: SQUAMOUS CELL CARCINOMA
     Dosage: INITIAL DOSE 348 MG (01-SEP-2000) REDUCED DUE TO WT LOSS
     Route: 042
     Dates: start: 20000901, end: 20001117
  4. BLINDED: PLACEBO [Suspect]
     Indication: SQUAMOUS CELL CARCINOMA
     Route: 042
     Dates: start: 20000901, end: 20001117
  5. SYNTHROID [Concomitant]
  6. NORTRIPTYLINE HCL [Concomitant]
  7. PRILOSEC [Concomitant]
  8. HYDROCHLOROTHIAZIDE [Concomitant]
  9. ATENOLOL [Concomitant]
  10. ZOCOR [Concomitant]
  11. K-DUR 10 [Concomitant]
  12. ASPIRIN [Concomitant]
  13. MOTRIN [Concomitant]
  14. HYDROCODONE [Concomitant]

REACTIONS (15)
  - ABASIA [None]
  - ANOREXIA [None]
  - AZOTAEMIA [None]
  - DEHYDRATION [None]
  - ESCHERICHIA INFECTION [None]
  - ESCHERICHIA SEPSIS [None]
  - FATIGUE [None]
  - HEADACHE [None]
  - HYPERCALCAEMIA [None]
  - HYPOCALCAEMIA [None]
  - HYPONATRAEMIA [None]
  - ORAL INTAKE REDUCED [None]
  - SEPSIS [None]
  - SPUTUM CULTURE POSITIVE [None]
  - WEIGHT DECREASED [None]
